FAERS Safety Report 7964132-3 (Version None)
Quarter: 2011Q4

REPORT INFORMATION
  Report Type: 
  Country: None (occurrence: None)
  Receive Date: 20111121
  Receipt Date: 20110914
  Transmission Date: 20120403
  Serious: No
  Sender: FDA-Public Use
  Company Number: 1000023828

PATIENT
  Age: 74 Year
  Sex: Male

DRUGS (8)
  1. VIIBRYD [Suspect]
     Indication: DEPRESSION
     Dosage: 40 MG (40 MG, 1 IN 1 D),ORAL
     Route: 048
     Dates: end: 20110914
  2. ASPIRIN [Concomitant]
  3. JANUVIA (SITAGLIPTIN PHOSPHATE)(SITAGLIPTIN PHOSPHATE) [Concomitant]
  4. METOPROLOL SUCCINATE [Concomitant]
  5. TRAZODONE (TRAZODONE)(TRAZODONE) [Concomitant]
  6. DIAZEPAM [Concomitant]
  7. VIIBRYD [Suspect]
     Indication: DEPRESSION
     Dosage: 10 MG (10 MG, 1 IN 1 D),ORAL, 20 MG (20 MG, 1 IN 1 D),ORAL
     Route: 048
     Dates: start: 20110801
  8. LISINOPRIL [Concomitant]

REACTIONS (1)
  - BLOOD PRESSURE INCREASED [None]
